FAERS Safety Report 20088330 (Version 1)
Quarter: 2021Q4

REPORT INFORMATION
  Report Type: Spontaneous
  Country: FR (occurrence: FR)
  Receive Date: 20211118
  Receipt Date: 20211118
  Transmission Date: 20220304
  Serious: Yes (Life-Threatening, Hospitalization, Other)
  Sender: FDA-Public Use
  Company Number: None

PATIENT
  Age: 73 Year
  Sex: Female
  Weight: 77 kg

DRUGS (6)
  1. ENBREL [Suspect]
     Active Substance: ETANERCEPT
     Indication: Rheumatoid arthritis
     Dosage: 50 MG, WEEKLY
     Route: 058
     Dates: start: 2011
  2. HYDROXYZINE HYDROCHLORIDE [Concomitant]
     Active Substance: HYDROXYZINE HYDROCHLORIDE
     Indication: Anxiety
     Dosage: 50 MG, 1X/DAY
     Route: 048
  3. HYDROCHLOROTHIAZIDE\IRBESARTAN [Concomitant]
     Active Substance: HYDROCHLOROTHIAZIDE\IRBESARTAN
     Indication: Hypertension
     Dosage: 1 DF, 1X/DAY
     Route: 048
  4. LYRICA [Concomitant]
     Active Substance: PREGABALIN
     Indication: Pain
     Dosage: 150 MG, 1X/DAY
     Route: 048
  5. BROMAZEPAM [Concomitant]
     Active Substance: BROMAZEPAM
     Indication: Anxiety
     Dosage: 1 DF, 1X/DAY
     Route: 048
  6. SKENAN [Concomitant]
     Active Substance: MORPHINE SULFATE
     Indication: Pain
     Dosage: 2 DF, 1X/DAY
     Route: 048

REACTIONS (1)
  - Glioblastoma [Not Recovered/Not Resolved]

NARRATIVE: CASE EVENT DATE: 20211018
